FAERS Safety Report 7457943-4 (Version None)
Quarter: 2011Q2

REPORT INFORMATION
  Report Type: 
  Country: None (occurrence: None)
  Receive Date: 20110504
  Receipt Date: 20110427
  Transmission Date: 20111010
  Serious: Yes (Other)
  Sender: FDA-Public Use
  Company Number: US-AMGEN-USASP2011022047

PATIENT
  Age: 57 Year
  Sex: Female

DRUGS (1)
  1. ENBREL [Suspect]
     Indication: RHEUMATOID ARTHRITIS
     Dates: start: 20070501, end: 20110201

REACTIONS (7)
  - BLINDNESS [None]
  - CATARACT [None]
  - EYE PAIN [None]
  - ANTERIOR CHAMBER CRYSTALLISATION [None]
  - EYE SWELLING [None]
  - GLAUCOMA [None]
  - VISUAL IMPAIRMENT [None]
